FAERS Safety Report 16663357 (Version 3)
Quarter: 2021Q1

REPORT INFORMATION
  Report Type: Spontaneous
  Country: NL (occurrence: NL)
  Receive Date: 20190802
  Receipt Date: 20210216
  Transmission Date: 20210419
  Serious: Yes (Hospitalization)
  Sender: FDA-Public Use
  Company Number: NL-PFIZER INC-2019325782

PATIENT
  Age: 65 Year
  Sex: Female

DRUGS (6)
  1. CARBOPLATIN. [Suspect]
     Active Substance: CARBOPLATIN
     Dosage: 657 MG, EVERY 3 WEEKS
     Route: 042
     Dates: start: 20190418
  2. PACLITAXEL. [Suspect]
     Active Substance: PACLITAXEL
     Indication: NON-SMALL CELL LUNG CANCER METASTATIC
     Dosage: 200 MG/M2, EVERY 3 WEEKS
     Route: 042
     Dates: start: 20190214
  3. PACLITAXEL. [Suspect]
     Active Substance: PACLITAXEL
     Dosage: 342 MG, EVERY 3 WEEKS
     Route: 042
     Dates: start: 20190418
  4. BEVACIZUMAB. [Suspect]
     Active Substance: BEVACIZUMAB
     Dosage: 1014 MG, EVERY 3 WEEKS
     Route: 042
     Dates: start: 20190619
  5. CARBOPLATIN. [Suspect]
     Active Substance: CARBOPLATIN
     Indication: NON-SMALL CELL LUNG CANCER METASTATIC
     Dosage: AUC 6, EVERY 3 WEEKS
     Route: 042
     Dates: start: 20190214
  6. BEVACIZUMAB. [Suspect]
     Active Substance: BEVACIZUMAB
     Indication: NON-SMALL CELL LUNG CANCER METASTATIC
     Dosage: 15 MG/KG, EVERY 3 WEEKS, (ON 19JUN2019, SHE RECEIVED THE MOST RECENT DOSE OF BEVACIZUMAB (1014 MG)
     Route: 042
     Dates: start: 20190214

REACTIONS (2)
  - Appendicitis perforated [Recovering/Resolving]
  - Off label use [Unknown]

NARRATIVE: CASE EVENT DATE: 20190214
